FAERS Safety Report 7236081-X (Version None)
Quarter: 2011Q1

REPORT INFORMATION
  Report Type: 
  Country: None (occurrence: None)
  Receive Date: 20110120
  Receipt Date: 20110107
  Transmission Date: 20110831
  Serious: Yes (Hospitalization)
  Sender: FDA-Public Use
  Company Number: FI-ABBOTT-11P-055-0695674-00

PATIENT
  Sex: Male

DRUGS (10)
  1. HUMIRA [Suspect]
     Indication: RHEUMATOID ARTHRITIS
     Route: 058
     Dates: start: 20100609, end: 20100901
  2. TRAMADOL HCL [Concomitant]
     Indication: RHEUMATOID ARTHRITIS
     Route: 048
  3. SIMVASTATIN [Concomitant]
     Indication: HYPERCHOLESTEROLAEMIA
     Route: 048
  4. CARDACE [Concomitant]
     Indication: HYPERTENSION
     Route: 048
  5. PRIMASPAN [Concomitant]
     Indication: CEREBROVASCULAR DISORDER
     Route: 048
     Dates: start: 20050101
  6. OXIKLORIN [Concomitant]
     Indication: RHEUMATOID ARTHRITIS
     Route: 048
  7. PREDNISONE [Concomitant]
     Indication: RHEUMATOID ARTHRITIS
     Route: 048
  8. AMLODIPINE [Concomitant]
     Indication: HYPERTENSION
     Route: 048
  9. CYSTRIN [Concomitant]
     Indication: URINARY INCONTINENCE
     Route: 048
  10. PERSANTIN [Concomitant]
     Indication: CEREBROVASCULAR DISORDER
     Route: 048
     Dates: start: 20050101

REACTIONS (3)
  - ABDOMINAL SYMPTOM [None]
  - INTESTINAL FUNCTIONAL DISORDER [None]
  - ABDOMINAL PAIN [None]
